FAERS Safety Report 8128434-2 (Version None)
Quarter: 2012Q1

REPORT INFORMATION
  Report Type: 
  Country: None (occurrence: None)
  Receive Date: 20120210
  Receipt Date: 20120208
  Transmission Date: 20120608
  Serious: Yes (Other)
  Sender: FDA-Public Use
  Company Number: US-BAYER-2012-013145

PATIENT
  Sex: Female

DRUGS (2)
  1. AVELOX [Suspect]
     Indication: SINUSITIS
  2. ACETAMINOPHEN [Suspect]
     Indication: HEADACHE

REACTIONS (5)
  - HEPATIC ENZYME INCREASED [None]
  - MALAISE [None]
  - HEADACHE [None]
  - CHROMATURIA [None]
  - HEPATOTOXICITY [None]
